FAERS Safety Report 4312481-2 (Version None)
Quarter: 2004Q1

REPORT INFORMATION
  Report Type: 
  Country: None (occurrence: None)
  Receive Date: 20040305
  Receipt Date: 20030922
  Transmission Date: 20041129
  Serious: Yes (Death, Other)
  Sender: FDA-Public Use
  Company Number: NO-BRISTOL-MYERS SQUIBB COMPANY-12393591

PATIENT
  Age: 65 Year
  Sex: Male

DRUGS (3)
  1. VEPESID [Suspect]
     Indication: LUNG CANCER METASTATIC
     Route: 048
     Dates: start: 20030729, end: 20030806
  2. ETOPOPHOS [Suspect]
     Indication: LUNG CANCER METASTATIC
     Route: 042
     Dates: start: 20030729, end: 20030729
  3. CARBOPLATIN [Suspect]
     Indication: LUNG CANCER METASTATIC
     Route: 042
     Dates: start: 20030729, end: 20030729

REACTIONS (5)
  - EPISTAXIS [None]
  - NEUTROPENIA [None]
  - OVERDOSE [None]
  - SEPSIS [None]
  - THROMBOCYTOPENIA [None]
